FAERS Safety Report 6647604-3 (Version None)
Quarter: 2010Q1

REPORT INFORMATION
  Report Type: 
  Country: None (occurrence: None)
  Receive Date: 20100323
  Receipt Date: 20100323
  Transmission Date: 20100710
  Serious: Yes (Life-Threatening, Hospitalization)
  Sender: FDA-Public Use
  Company Number: None

PATIENT
  Age: 61 Year
  Sex: Male
  Weight: 95.3 kg

DRUGS (2)
  1. DILTIAZEM HCL [Suspect]
     Indication: ATRIAL FIBRILLATION
     Dosage: 10 MG ONCE IV
     Route: 042
     Dates: start: 20100322
  2. METOPROLOL TARTRATE [Suspect]
     Indication: ATRIAL FIBRILLATION
     Dosage: 5 MG ONCE IV
     Route: 042
     Dates: start: 20100322, end: 20100322

REACTIONS (3)
  - CARDIAC ARREST [None]
  - HYPOTENSION [None]
  - UNRESPONSIVE TO STIMULI [None]
